FAERS Safety Report 6428328-4 (Version None)
Quarter: 2009Q4

REPORT INFORMATION
  Report Type: 
  Country: None (occurrence: None)
  Receive Date: 20091102
  Receipt Date: 20090918
  Transmission Date: 20100525
  Serious: Yes (Hospitalization)
  Sender: FDA-Public Use
  Company Number: GXKR2009DE11798

PATIENT
  Age: 48 Year
  Sex: Male

DRUGS (1)
  1. CLARITHROBETA            FILM-COATED TABLET [Suspect]
     Indication: NASOPHARYNGITIS
     Dosage: 250 MG, BID, ORAL
     Route: 048

REACTIONS (1)
  - POLYARTERITIS NODOSA [None]
